FAERS Safety Report 16696451 (Version 1)
Quarter: 2019Q3

REPORT INFORMATION
  Report Type: Spontaneous
  Country: FR (occurrence: FR)
  Receive Date: 20190813
  Receipt Date: 20190813
  Transmission Date: 20191004
  Serious: Yes (Other)
  Sender: FDA-Public Use
  Company Number: FR-MYLANLABS-2019M1074585

PATIENT
  Age: 15 Year
  Sex: Male
  Weight: 57.3 kg

DRUGS (3)
  1. CISPLATINE ACCORD [Suspect]
     Active Substance: CISPLATIN
     Indication: TESTICULAR GERM CELL TUMOUR
     Dosage: 165 MILLIGRAM, Q21D (DE J1 ? J5)
     Route: 041
     Dates: start: 20160930, end: 20161118
  2. IFOSFAMIDE EG [Suspect]
     Active Substance: IFOSFAMIDE
     Indication: TESTICULAR GERM CELL TUMOUR
     Dosage: 9760 MILLIGRAM, Q21D (DE J1 ? J2(
     Route: 041
     Dates: start: 20160930
  3. ETOPOSIDE MYLAN 20 MG/ML, SOLUTION ? DILUER POUR PERFUSION [Suspect]
     Active Substance: ETOPOSIDE
     Indication: TESTICULAR GERM CELL TUMOUR
     Dosage: 620 MILLIGRAM, Q21D (DE J1 ? J5)
     Route: 041
     Dates: start: 20160903, end: 20161118

REACTIONS (1)
  - Aplasia [Recovered/Resolved]

NARRATIVE: CASE EVENT DATE: 20161201
